FAERS Safety Report 8315635 (Version 2)
Quarter: 2017Q1

REPORT INFORMATION
  Report Type: Report from Study
  Country: FR (occurrence: FR)
  Receive Date: 20111229
  Receipt Date: 20170110
  Transmission Date: 20170429
  Serious: Yes (Hospitalization, Other)
  Sender: FDA-Public Use
  Company Number: FR-ROCHE-1023804

PATIENT
  Age: 77 Year
  Sex: Male

DRUGS (39)
  1. TOCILIZUMAB [Suspect]
     Active Substance: TOCILIZUMAB
     Route: 041
     Dates: start: 20110112
  2. TOCILIZUMAB [Suspect]
     Active Substance: TOCILIZUMAB
     Route: 041
     Dates: start: 20110324
  3. TOCILIZUMAB [Suspect]
     Active Substance: TOCILIZUMAB
     Dosage: 8MG/KG
     Route: 041
     Dates: start: 20110629
  4. TOCILIZUMAB [Suspect]
     Active Substance: TOCILIZUMAB
     Route: 041
     Dates: start: 20111116
  5. HYDROCORTISONE. [Concomitant]
     Active Substance: HYDROCORTISONE
  6. CARDENSIEL [Concomitant]
     Active Substance: BISOPROLOL FUMARATE
  7. TOCILIZUMAB [Suspect]
     Active Substance: TOCILIZUMAB
     Dosage: 8 MG/KG
     Route: 041
     Dates: start: 20111017
  8. TOCILIZUMAB [Suspect]
     Active Substance: TOCILIZUMAB
     Route: 041
     Dates: start: 20120118
  9. TOCILIZUMAB [Suspect]
     Active Substance: TOCILIZUMAB
     Route: 041
     Dates: start: 20120731
  10. METHOTREXATE. [Concomitant]
     Active Substance: METHOTREXATE
     Route: 065
  11. KARDEGIC [Concomitant]
     Active Substance: ASPIRIN LYSINE
  12. TAREG [Concomitant]
     Active Substance: VALSARTAN
  13. TOCILIZUMAB [Suspect]
     Active Substance: TOCILIZUMAB
     Route: 041
     Dates: start: 20101118
  14. TOCILIZUMAB [Suspect]
     Active Substance: TOCILIZUMAB
     Route: 041
     Dates: start: 20110216
  15. TOCILIZUMAB [Suspect]
     Active Substance: TOCILIZUMAB
     Route: 041
     Dates: start: 20110428
  16. TOCILIZUMAB [Suspect]
     Active Substance: TOCILIZUMAB
     Route: 041
     Dates: start: 20111220
  17. METHOTREXATE. [Concomitant]
     Active Substance: METHOTREXATE
     Route: 065
  18. SPECIAFOLDINE [Concomitant]
     Active Substance: FOLIC ACID
  19. TOCILIZUMAB [Suspect]
     Active Substance: TOCILIZUMAB
     Route: 041
     Dates: start: 20101216
  20. TOCILIZUMAB [Suspect]
     Active Substance: TOCILIZUMAB
     Route: 041
     Dates: start: 20120829
  21. CORTANCYL [Concomitant]
     Active Substance: PREDNISONE
     Route: 065
  22. CORTANCYL [Concomitant]
     Active Substance: PREDNISONE
     Route: 065
  23. TOCILIZUMAB [Suspect]
     Active Substance: TOCILIZUMAB
     Dosage: 8 MG/KG
     Route: 041
     Dates: start: 20110914
  24. TOCILIZUMAB [Suspect]
     Active Substance: TOCILIZUMAB
     Route: 041
     Dates: start: 20120312
  25. TOCILIZUMAB [Suspect]
     Active Substance: TOCILIZUMAB
     Route: 041
     Dates: start: 20120412
  26. CORTANCYL [Concomitant]
     Active Substance: PREDNISONE
     Dosage: 15 MG
     Route: 065
  27. TOCILIZUMAB [Suspect]
     Active Substance: TOCILIZUMAB
     Route: 041
     Dates: start: 20120213
  28. TOCILIZUMAB [Suspect]
     Active Substance: TOCILIZUMAB
     Route: 041
     Dates: start: 20120607
  29. TOCILIZUMAB [Suspect]
     Active Substance: TOCILIZUMAB
     Indication: RHEUMATOID ARTHRITIS
     Dosage: 8 MG/KG
     Route: 041
     Dates: start: 20101021
  30. TOCILIZUMAB [Suspect]
     Active Substance: TOCILIZUMAB
     Route: 041
     Dates: start: 20120702
  31. CORTANCYL [Concomitant]
     Active Substance: PREDNISONE
     Route: 065
  32. UVEDOSE [Concomitant]
     Active Substance: CHOLECALCIFEROL
  33. RIFINAH [Concomitant]
     Active Substance: ISONIAZID\RIFAMPIN
  34. FUROSEMIDE. [Concomitant]
     Active Substance: FUROSEMIDE
  35. INIPOMP [Concomitant]
     Active Substance: PANTOPRAZOLE SODIUM
  36. TOCILIZUMAB [Suspect]
     Active Substance: TOCILIZUMAB
     Route: 041
     Dates: start: 20120514
  37. COLCHICINE. [Concomitant]
     Active Substance: COLCHICINE
  38. NORSET [Concomitant]
     Active Substance: MIRTAZAPINE
  39. TAHOR [Concomitant]
     Active Substance: ATORVASTATIN CALCIUM

REACTIONS (19)
  - Chronic respiratory failure [Recovered/Resolved]
  - Productive cough [Recovered/Resolved]
  - Rhinitis [Recovered/Resolved]
  - Haemoptysis [Recovered/Resolved]
  - Bursitis infective [Recovered/Resolved]
  - Cardiac failure [Recovered/Resolved]
  - Left ventricular failure [Recovered/Resolved]
  - Tuberculosis [Not Recovered/Not Resolved]
  - Lung infection [Recovered/Resolved]
  - Pulmonary fibrosis [Not Recovered/Not Resolved]
  - Bursitis [Not Recovered/Not Resolved]
  - Pulmonary tuberculosis [Recovered/Resolved]
  - Groin pain [Recovered/Resolved]
  - Bronchitis [Recovered/Resolved]
  - Angina pectoris [Recovered/Resolved]
  - Infection [Recovered/Resolved]
  - Myocardial infarction [Recovered/Resolved]
  - Lung infection [Recovered/Resolved]
  - Cholecystitis acute [Recovered/Resolved]

NARRATIVE: CASE EVENT DATE: 20101023
